FAERS Safety Report 9723645 (Version 2)
Quarter: 2014Q1

REPORT INFORMATION
  Report Type: Spontaneous
  Country: US (occurrence: US)
  Receive Date: 20131202
  Receipt Date: 20140303
  Transmission Date: 20141002
  Serious: Yes (Other)
  Sender: FDA-Public Use
  Company Number: US-TEVA-447404USA

PATIENT
  Age: 47 Year
  Sex: Female
  Weight: 64.92 kg

DRUGS (2)
  1. PARAGARD 380A [Suspect]
     Indication: CONTRACEPTION
     Route: 015
     Dates: start: 20131104, end: 20131121
  2. TEMAZEPAM [Concomitant]
     Indication: BREAST CANCER

REACTIONS (4)
  - Device dislocation [Recovered/Resolved]
  - Abdominal pain lower [Recovered/Resolved]
  - Vaginal discharge [Recovered/Resolved]
  - Pyrexia [Recovered/Resolved]
